FAERS Safety Report 4893893-5 (Version None)
Quarter: 2006Q1

REPORT INFORMATION
  Report Type: 
  Country: None (occurrence: None)
  Receive Date: 20060127
  Receipt Date: 20051102
  Transmission Date: 20060701
  Serious: No
  Sender: FDA-Public Use
  Company Number: US-BRISTOL-MYERS SQUIBB COMPANY-13164553

PATIENT
  Age: 6 Year
  Sex: Female

DRUGS (1)
  1. CEFZIL [Suspect]
     Indication: URINARY TRACT INFECTION
     Dosage: DOSE: 250 MG/5ML SUSPENSION ON 20-SEP-2005 FOR 10 DAYS; RESTARTED ON 27-OCT-2005
     Route: 048
     Dates: start: 20050920

REACTIONS (1)
  - DRUG INEFFECTIVE [None]
